FAERS Safety Report 10651916 (Version 1)
Quarter: 2014Q4

REPORT INFORMATION
  Report Type: Spontaneous
  Country: US (occurrence: None)
  Receive Date: 20141205
  Receipt Date: 20141205
  Transmission Date: 20150529
  Serious: Yes (Hospitalization)
  Sender: FDA-Public Use
  Company Number: 2014GMK011479

PATIENT
  Age: 45 Year
  Sex: Female

DRUGS (2)
  1. OXCARBAZEPINE. [Suspect]
     Active Substance: OXCARBAZEPINE
     Indication: ANTIDEPRESSANT THERAPY
     Route: 048
     Dates: start: 20140725
  2. SAPHRIS (ASENAPINE MALEATE) [Concomitant]

REACTIONS (4)
  - Blood sodium decreased [None]
  - Feeling abnormal [None]
  - Syncope [None]
  - Off label use [None]

NARRATIVE: CASE EVENT DATE: 20140725
